FAERS Safety Report 10802956 (Version 1)
Quarter: 2015Q1

REPORT INFORMATION
  Report Type: Spontaneous
  Country: US (occurrence: US)
  Receive Date: 20150217
  Receipt Date: 20150217
  Transmission Date: 20150721
  Serious: No
  Sender: FDA-Public Use
  Company Number: US-PFIZER INC-2015055691

PATIENT
  Age: 54 Year
  Sex: Female
  Weight: 122.45 kg

DRUGS (14)
  1. BENICAR [Concomitant]
     Active Substance: OLMESARTAN MEDOXOMIL
     Dosage: 20 MG, ONCE A DAY
  2. ALLEGRA-D [Concomitant]
     Active Substance: FEXOFENADINE\PSEUDOEPHEDRINE
     Dosage: FEXOFENADINE180 MG- PSEUDOEPHEDRINE HYDROCHLORIDE240 MG, ONCE A DAY
  3. OMEPRAZOLE. [Concomitant]
     Active Substance: OMEPRAZOLE
     Dosage: 40 MG, BID
  4. AROMASIN [Suspect]
     Active Substance: EXEMESTANE
     Dosage: 25 MG, 1X/DAY
  5. CELEBREX [Suspect]
     Active Substance: CELECOXIB
     Dosage: 200 MG BID
  6. EFFEXOR [Suspect]
     Active Substance: VENLAFAXINE HYDROCHLORIDE
     Dosage: 37.5 MG, 2 TIMES A DAY
  7. MAGNESIUM [Concomitant]
     Active Substance: MAGNESIUM
     Dosage: 200 MG, QD
  8. SIMVASTATIN. [Concomitant]
     Active Substance: SIMVASTATIN
     Dosage: 40 MG, ONCE A DAY (AT BEDTIME)
  9. VITAMIN D [Concomitant]
     Active Substance: CHOLECALCIFEROL
     Dosage: 5000 UNITS TAB 2 QD
  10. VITAMIN B12 [Concomitant]
     Active Substance: CYANOCOBALAMIN
     Dosage: 1500 ?G, ONCE A DAY
  11. POTASSIUM GLUCONATE [Concomitant]
     Active Substance: POTASSIUM GLUCONATE
     Dosage: 595 MG, ONCE A DAY
  12. TRAMADOL [Concomitant]
     Active Substance: TRAMADOL
     Indication: PAIN
     Dosage: 50 MG, QID, PRN
  13. XANAX [Suspect]
     Active Substance: ALPRAZOLAM
     Dosage: 0.25 MG, 1/2 Q HS
  14. NASACORT AQ [Concomitant]
     Active Substance: TRIAMCINOLONE ACETONIDE
     Dosage: 55?G, 2 SPRAY(S) ONCE A DAY

REACTIONS (4)
  - Peripheral swelling [Unknown]
  - Arthralgia [Not Recovered/Not Resolved]
  - Pain in extremity [Not Recovered/Not Resolved]
  - Tenosynovitis [Not Recovered/Not Resolved]
